FAERS Safety Report 8932495 (Version 1)
Quarter: 2012Q4

REPORT INFORMATION
  Report Type: Spontaneous
  Country: US (occurrence: None)
  Receive Date: 20121126
  Receipt Date: 20121126
  Transmission Date: 20130627
  Serious: No
  Sender: FDA-Public Use
  Company Number: None

PATIENT
  Age: 77 Year

DRUGS (2)
  1. LEVAQUIN [Suspect]
     Route: 048
     Dates: start: 20110917
  2. CIPROFLOXACIN [Suspect]
     Route: 048
     Dates: start: 20120921

REACTIONS (10)
  - Anxiety [None]
  - Confusional state [None]
  - Visual impairment [None]
  - Ageusia [None]
  - Fatigue [None]
  - Decreased appetite [None]
  - Depression [None]
  - Feeling of despair [None]
  - Insomnia [None]
  - Thinking abnormal [None]
